FAERS Safety Report 15663234 (Version 1)
Quarter: 2018Q4

REPORT INFORMATION
  Report Type: Spontaneous
  Country: US (occurrence: US)
  Receive Date: 20181128
  Receipt Date: 20181128
  Transmission Date: 20190205
  Serious: No
  Sender: FDA-Public Use
  Company Number: US-SA-2018SA294864

PATIENT
  Sex: Male

DRUGS (1)
  1. DULCOLAX (BISACODYL) [Suspect]
     Active Substance: BISACODYL
     Dosage: 2 DF
     Route: 048
     Dates: start: 20180720

REACTIONS (3)
  - Haemorrhoids [Unknown]
  - Diarrhoea [Unknown]
  - Burning sensation [Unknown]

NARRATIVE: CASE EVENT DATE: 20181020
